FAERS Safety Report 4451671-5 (Version None)
Quarter: 2004Q3

REPORT INFORMATION
  Report Type: 
  Country: None (occurrence: None)
  Receive Date: 20040915
  Receipt Date: 20040901
  Transmission Date: 20050211
  Serious: Yes (Hospitalization)
  Sender: FDA-Public Use
  Company Number: 04P-087-0270003-00

PATIENT
  Age: 73 Year
  Sex: Male

DRUGS (10)
  1. AKINETON [Suspect]
     Dosage: 3 MG, 2 IN 1 D, PER ORAL
     Route: 048
  2. ZOTEPINE (ZOTEPINE) (ZOTEPINE) [Suspect]
     Indication: SCHIZOPHRENIA
     Dosage: 30 MG, 2 IN 1 D, PER ORAL
     Route: 048
  3. SULPIRIDE [Suspect]
     Dosage: 450 MG, 2 IN 1 D, PER ORAL
     Route: 048
  4. CLONAZEPAM [Suspect]
     Dosage: 750 MG, 2 IN 1 D, PER ORAL
     Route: 048
  5. CHLORPROMAZINE [Suspect]
     Dosage: 50 MG, 2 IN 1 D, PER ORAL
     Route: 048
  6. AMANTADINE HCL [Suspect]
     Dosage: 50 MG, 2 IN 1 D, PER ORAL
     Route: 048
  7. RILMAZAFONE [Suspect]
     Dosage: 2 MG, ^UID^ QD, PER ORAL
     Route: 048
  8. NITRAZEPAM [Suspect]
     Dosage: 10 MG, PER ORAL
     Route: 048
  9. MAGNESIUM [Concomitant]
  10. MOSAPRIDE [Concomitant]

REACTIONS (4)
  - HYPOXIA [None]
  - INTESTINAL OBSTRUCTION [None]
  - NEUROLEPTIC MALIGNANT SYNDROME [None]
  - PNEUMONIA [None]
